FAERS Safety Report 9307842 (Version 1)
Quarter: 2013Q2

REPORT INFORMATION
  Report Type: Spontaneous
  Country: CN (occurrence: CN)
  Receive Date: 20130524
  Receipt Date: 20130524
  Transmission Date: 20140414
  Serious: Yes (Hospitalization, Other)
  Sender: FDA-Public Use
  Company Number: CN-ELI_LILLY_AND_COMPANY-CN201305006565

PATIENT
  Sex: Female

DRUGS (1)
  1. OLANZAPINE [Suspect]
     Dosage: 5 MG, QD
     Route: 048
     Dates: start: 20111114

REACTIONS (5)
  - General physical condition abnormal [Recovering/Resolving]
  - Dysphagia [Recovering/Resolving]
  - Decreased appetite [Recovering/Resolving]
  - Communication disorder [Recovering/Resolving]
  - Akathisia [Recovering/Resolving]
